FAERS Safety Report 11685845 (Version 1)
Quarter: 2015Q4

REPORT INFORMATION
  Report Type: Spontaneous
  Country: PE (occurrence: PE)
  Receive Date: 20151030
  Receipt Date: 20151030
  Transmission Date: 20160304
  Serious: Yes (Death, Hospitalization)
  Sender: FDA-Public Use
  Company Number: PE-TEVA-603529ISR

PATIENT
  Age: 54 Year
  Sex: Female

DRUGS (3)
  1. CYCLOPHOSPHAMIDE. [Concomitant]
     Active Substance: CYCLOPHOSPHAMIDE
     Indication: PULMONARY FIBROSIS
     Dosage: 50 MILLIGRAM DAILY;
     Route: 048
     Dates: start: 2012, end: 201506
  2. TRAMADOL PLUS PARACETAMOL [Concomitant]
     Indication: ARTHRALGIA
     Route: 048
     Dates: start: 2009, end: 201506
  3. FILARTROS [Suspect]
     Active Substance: LEFLUNOMIDE
     Indication: RHEUMATOID ARTHRITIS
     Dosage: 20 MILLIGRAM DAILY;
     Route: 048
     Dates: start: 2013, end: 20150603

REACTIONS (3)
  - Pneumonia bacterial [Recovered/Resolved]
  - Proteus infection [Recovered/Resolved]
  - Respiratory failure [Fatal]

NARRATIVE: CASE EVENT DATE: 201504
